FAERS Safety Report 5117311-7 (Version None)
Quarter: 2006Q3

REPORT INFORMATION
  Report Type: 
  Country: None (occurrence: None)
  Receive Date: 20060929
  Receipt Date: 20060717
  Transmission Date: 20061208
  Serious: Yes (Death, Hospitalization, Other)
  Sender: FDA-Public Use
  Company Number: PHEH2006US09148

PATIENT
  Age: 48 Year
  Sex: Male

DRUGS (2)
  1. EXJADE [Suspect]
     Indication: BLOOD IRON INCREASED
     Dosage: 2500 MG, QD
     Route: 048
     Dates: start: 20060401, end: 20060512
  2. TACROLIMUS [Concomitant]

REACTIONS (18)
  - ALANINE AMINOTRANSFERASE INCREASED [None]
  - ASPARTATE AMINOTRANSFERASE INCREASED [None]
  - BLOOD ALKALINE PHOSPHATASE INCREASED [None]
  - BLOOD BILIRUBIN INCREASED [None]
  - BLOOD CREATININE INCREASED [None]
  - BLOOD IRON ABNORMAL [None]
  - DEEP VEIN THROMBOSIS [None]
  - ELECTROLYTE IMBALANCE [None]
  - FLUID OVERLOAD [None]
  - GRAFT VERSUS HOST DISEASE [None]
  - HAEMODIALYSIS [None]
  - HEPATIC FAILURE [None]
  - INTUBATION [None]
  - RADIOTHERAPY [None]
  - RENAL FAILURE ACUTE [None]
  - SEPTIC SHOCK [None]
  - STEM CELL TRANSPLANT [None]
  - VENOOCCLUSIVE LIVER DISEASE [None]
